FAERS Safety Report 23896845 (Version 1)
Quarter: 2024Q2

REPORT INFORMATION
  Report Type: Spontaneous
  Country: US (occurrence: US)
  Receive Date: 20240524
  Receipt Date: 20240524
  Transmission Date: 20240716
  Serious: No
  Sender: FDA-Public Use
  Company Number: US-AMGEN-USASP2024100526

PATIENT
  Age: 72 Year
  Sex: Male

DRUGS (2)
  1. OTEZLA [Suspect]
     Active Substance: APREMILAST
     Indication: Psoriatic arthropathy
     Dosage: 30 MILLIGRAM, BID ^^ONE IN THE A.M. AND ONE IN THE P.M. DAILY^
     Route: 065
     Dates: start: 2023
  2. OTEZLA [Suspect]
     Active Substance: APREMILAST
     Indication: Rheumatoid arthritis

REACTIONS (1)
  - Drug ineffective [Unknown]
